FAERS Safety Report 18372299 (Version 1)
Quarter: 2020Q4

REPORT INFORMATION
  Report Type: Spontaneous
  Country: US (occurrence: US)
  Receive Date: 20201012
  Receipt Date: 20201012
  Transmission Date: 20210114
  Serious: No
  Sender: FDA-Public Use
  Company Number: US-TAKEDA-2020TUS040843

PATIENT
  Sex: Male
  Weight: 90 kg

DRUGS (4)
  1. ENTYVIO [Suspect]
     Active Substance: VEDOLIZUMAB
     Indication: COLITIS ULCERATIVE
     Dosage: UNK
     Route: 065
     Dates: start: 20200320
  2. METRONIDAZOLE. [Concomitant]
     Active Substance: METRONIDAZOLE
     Dosage: UNK UNK, TID
  3. LEVOTHYROXINE. [Concomitant]
     Active Substance: LEVOTHYROXINE
     Dosage: UNK
  4. UCERIS [Concomitant]
     Active Substance: BUDESONIDE
     Dosage: UNK

REACTIONS (9)
  - Decreased appetite [Unknown]
  - Arthralgia [Unknown]
  - Gait inability [Unknown]
  - Photophobia [Unknown]
  - Myalgia [Unknown]
  - Ageusia [Unknown]
  - Diarrhoea [Recovered/Resolved]
  - Headache [Unknown]
  - Asthenia [Unknown]
